FAERS Safety Report 9208780 (Version 2)
Quarter: 2013Q2

REPORT INFORMATION
  Report Type: Spontaneous
  Country: US (occurrence: US)
  Receive Date: 20130404
  Receipt Date: 20130517
  Transmission Date: 20140414
  Serious: No
  Sender: FDA-Public Use
  Company Number: US-PFIZER INC-2013105698

PATIENT
  Age: 78 Year
  Sex: Male
  Weight: 98.87 kg

DRUGS (6)
  1. LIPITOR [Suspect]
     Indication: BLOOD CHOLESTEROL ABNORMAL
     Dosage: 80 MG, DAILY
     Route: 048
     Dates: start: 2012
  2. ASPIRIN [Concomitant]
     Indication: BLOOD CHOLESTEROL ABNORMAL
     Dosage: 81 MG, DAILY
  3. FISH OIL [Concomitant]
     Indication: BLOOD CHOLESTEROL ABNORMAL
     Dosage: 500 MG, DAILY
  4. FISH OIL [Concomitant]
     Dosage: 1000 MG, UNK
  5. NIACIN [Concomitant]
     Indication: BLOOD CHOLESTEROL ABNORMAL
     Dosage: 400 MG, DAILY
  6. NIASPAN [Concomitant]
     Dosage: 500 MG, UNK

REACTIONS (1)
  - Tremor [Not Recovered/Not Resolved]
